FAERS Safety Report 16748992 (Version 1)
Quarter: 2019Q3

REPORT INFORMATION
  Report Type: Spontaneous
  Country: CA (occurrence: CA)
  Receive Date: 20190828
  Receipt Date: 20190828
  Transmission Date: 20191005
  Serious: Yes (Life-Threatening, Other)
  Sender: FDA-Public Use
  Company Number: CA-AUROBINDO-AUR-APL-2019-055310

PATIENT

DRUGS (6)
  1. NADOLOL. [Suspect]
     Active Substance: NADOLOL
     Indication: VENTRICULAR TACHYCARDIA
  2. FLECAINIDE [Suspect]
     Active Substance: FLECAINIDE
     Indication: ATRIAL TACHYCARDIA
     Dosage: UNK
     Route: 065
  3. FLECAINIDE [Suspect]
     Active Substance: FLECAINIDE
     Indication: CARDIOGENIC SHOCK
  4. NADOLOL. [Suspect]
     Active Substance: NADOLOL
     Indication: CARDIOGENIC SHOCK
  5. NADOLOL. [Suspect]
     Active Substance: NADOLOL
     Indication: ATRIAL TACHYCARDIA
     Dosage: UNK
     Route: 065
  6. FLECAINIDE [Suspect]
     Active Substance: FLECAINIDE
     Indication: VENTRICULAR TACHYCARDIA

REACTIONS (1)
  - Drug ineffective [Recovering/Resolving]
